FAERS Safety Report 18973036 (Version 1)
Quarter: 2021Q1

REPORT INFORMATION
  Report Type: Spontaneous
  Country: US (occurrence: US)
  Receive Date: 20210304
  Receipt Date: 20210304
  Transmission Date: 20210420
  Serious: Yes (Hospitalization)
  Sender: FDA-Public Use
  Company Number: None

PATIENT
  Age: 74 Year
  Sex: Male

DRUGS (1)
  1. HUMIRA [Suspect]
     Active Substance: ADALIMUMAB
     Dosage: ?          OTHER FREQUENCY:EVERY10DAYS ;?
     Route: 058
     Dates: start: 20150428

REACTIONS (2)
  - Acute leukaemia [None]
  - White blood cell count abnormal [None]

NARRATIVE: CASE EVENT DATE: 20210105
